FAERS Safety Report 6371301-5 (Version None)
Quarter: 2009Q3

REPORT INFORMATION
  Report Type: 
  Country: None (occurrence: None)
  Receive Date: 20090923
  Receipt Date: 20090917
  Transmission Date: 20100115
  Serious: No
  Sender: FDA-Public Use
  Company Number: BR-JNJFOC-20090905859

PATIENT
  Age: 57 Year
  Sex: Female
  Weight: 23.59 kg

DRUGS (1)
  1. DURAGESIC-100 [Suspect]
     Indication: BONE PAIN
     Route: 062

REACTIONS (1)
  - DRUG PRESCRIBING ERROR [None]
